FAERS Safety Report 7089600-0 (Version None)
Quarter: 2010Q4

REPORT INFORMATION
  Report Type: 
  Country: None (occurrence: None)
  Receive Date: 20101108
  Receipt Date: 20101101
  Transmission Date: 20110411
  Serious: Yes (Life-Threatening, Hospitalization, Other)
  Sender: FDA-Public Use
  Company Number: RU-GENENTECH-299171

PATIENT
  Sex: Female

DRUGS (1)
  1. RITUXIMAB [Suspect]
     Indication: RHEUMATOID ARTHRITIS
     Dosage: UNK
     Route: 042
     Dates: start: 20080601, end: 20081028

REACTIONS (6)
  - BRAIN ABSCESS [None]
  - CHRONIC SINUSITIS [None]
  - EAR INFECTION [None]
  - IMMUNODEFICIENCY [None]
  - MASTOIDITIS [None]
  - MENINGITIS [None]
